FAERS Safety Report 9925090 (Version 1)
Quarter: 2014Q1

REPORT INFORMATION
  Report Type: Spontaneous
  Country: US (occurrence: None)
  Receive Date: 20140221
  Receipt Date: 20140221
  Transmission Date: 20141002
  Serious: Yes (Hospitalization)
  Sender: FDA-Public Use
  Company Number: 2013-US-000090

PATIENT
  Age: 61 Year
  Sex: Male

DRUGS (3)
  1. XYREM (SODIUM OXYBATE) ORAL SOLUTION, 500MG/ML [Suspect]
     Route: 048
     Dates: start: 201201, end: 2012
  2. OTHER PSYCHOSTIMULANTS AND NOOTROPICS (STIMULANTS) [Concomitant]
  3. ANALGESICS [Concomitant]

REACTIONS (1)
  - Knee arthroplasty [None]
